FAERS Safety Report 23619919 (Version 1)
Quarter: 2024Q1

REPORT INFORMATION
  Report Type: Spontaneous
  Country: US (occurrence: US)
  Receive Date: 20240312
  Receipt Date: 20240312
  Transmission Date: 20240409
  Serious: Yes (Life-Threatening, Other)
  Sender: FDA-Public Use
  Company Number: US-SANDOZ-SDZ2024US025453

PATIENT
  Age: 49 Year

DRUGS (2)
  1. HYDROCORTISONE [Suspect]
     Active Substance: HYDROCORTISONE
     Indication: Systemic lupus erythematosus
     Dosage: 100 MG, EVERY 8 HOURS
     Route: 065
  2. SARGRAMOSTIM [Concomitant]
     Active Substance: SARGRAMOSTIM
     Indication: Systemic lupus erythematosus
     Dosage: 500 MCG DAILY FOR 4 DAYS
     Route: 065

REACTIONS (3)
  - Apnoeic attack [Unknown]
  - Body temperature decreased [Unknown]
  - White blood cell count increased [Unknown]
